FAERS Safety Report 24716990 (Version 1)
Quarter: 2024Q4

REPORT INFORMATION
  Report Type: Spontaneous
  Country: FR (occurrence: FR)
  Receive Date: 20241210
  Receipt Date: 20241210
  Transmission Date: 20250114
  Serious: Yes (Death, Life-Threatening, Hospitalization, Other)
  Sender: B BRAUN
  Company Number: FR-B.Braun Medical Inc.-2166819

PATIENT
  Age: 88 Year
  Sex: Female

DRUGS (9)
  1. CEFTRIAXONE SODIUM [Suspect]
     Active Substance: CEFTRIAXONE SODIUM
  2. APIXABAN [Suspect]
     Active Substance: APIXABAN
  3. MORPHINE [Concomitant]
     Active Substance: MORPHINE
  4. LEVOFLOXACIN [Concomitant]
     Active Substance: LEVOFLOXACIN
  5. HEPARIN [Concomitant]
     Active Substance: HEPARIN SODIUM
  6. MIANSERIN [Suspect]
     Active Substance: MIANSERIN
  7. HYDROCHLOROTHIAZIDE [Suspect]
     Active Substance: HYDROCHLOROTHIAZIDE
  8. ESCITALOPRAM [Suspect]
     Active Substance: ESCITALOPRAM OXALATE
  9. BISOPROLOL FUMARATE [Suspect]
     Active Substance: BISOPROLOL FUMARATE

REACTIONS (4)
  - Drug reaction with eosinophilia and systemic symptoms [Fatal]
  - Acute kidney injury [Fatal]
  - Hyponatraemia [Fatal]
  - Inappropriate antidiuretic hormone secretion [Fatal]
